FAERS Safety Report 15928433 (Version 1)
Quarter: 2019Q1

REPORT INFORMATION
  Report Type: Spontaneous
  Country: US (occurrence: US)
  Receive Date: 20190206
  Receipt Date: 20190206
  Transmission Date: 20190417
  Serious: Yes (Hospitalization, Other)
  Sender: FDA-Public Use
  Company Number: US-OTSUKA-2018_026211

PATIENT
  Sex: Male

DRUGS (8)
  1. ABILIFY [Suspect]
     Active Substance: ARIPIPRAZOLE
     Indication: DEPRESSION
  2. ABILIFY [Suspect]
     Active Substance: ARIPIPRAZOLE
     Indication: OBSESSIVE-COMPULSIVE DISORDER
  3. ABILIFY [Suspect]
     Active Substance: ARIPIPRAZOLE
     Indication: ATTENTION DEFICIT/HYPERACTIVITY DISORDER
  4. ABILIFY [Suspect]
     Active Substance: ARIPIPRAZOLE
     Indication: BIPOLAR DISORDER
  5. ABILIFY [Suspect]
     Active Substance: ARIPIPRAZOLE
     Indication: MAJOR DEPRESSION
  6. ABILIFY [Suspect]
     Active Substance: ARIPIPRAZOLE
     Indication: ANXIETY
  7. ABILIFY [Suspect]
     Active Substance: ARIPIPRAZOLE
     Indication: PERSONALITY DISORDER
  8. ABILIFY [Suspect]
     Active Substance: ARIPIPRAZOLE
     Indication: SCHIZOPHRENIA
     Dosage: UNK
     Route: 065
     Dates: start: 201208, end: 201711

REACTIONS (13)
  - Economic problem [Unknown]
  - Suicide attempt [Recovered/Resolved]
  - Loss of employment [Unknown]
  - Compulsive sexual behaviour [Recovered/Resolved]
  - Obsessive-compulsive disorder [Recovered/Resolved]
  - Condition aggravated [Recovered/Resolved]
  - Mental disorder [Unknown]
  - Gambling disorder [Recovered/Resolved]
  - Suicidal ideation [Recovered/Resolved]
  - Compulsive hoarding [Recovered/Resolved]
  - Compulsive shopping [Recovered/Resolved]
  - Divorced [Unknown]
  - Product use in unapproved indication [Unknown]
